FAERS Safety Report 4427241-1 (Version None)
Quarter: 2004Q3

REPORT INFORMATION
  Report Type: 
  Country: None (occurrence: None)
  Receive Date: 20040817
  Receipt Date: 20040809
  Transmission Date: 20050211
  Serious: Yes (Hospitalization)
  Sender: FDA-Public Use
  Company Number: PHFR2004GB03138

PATIENT
  Age: 70 Year
  Sex: Male

DRUGS (8)
  1. DICLOFENAC [Suspect]
     Indication: BACK PAIN
     Dosage: 50 MG, QID
     Route: 048
     Dates: start: 20040409, end: 20040719
  2. MELOXICAM [Suspect]
     Dosage: 15MG ONE DOSE
     Route: 048
     Dates: start: 20040719
  3. ASPIRIN [Suspect]
     Dosage: 75MG AM
     Route: 048
     Dates: start: 20000726, end: 20040720
  4. FUROSEMIDE [Concomitant]
     Dosage: 40MG AM
     Route: 048
  5. AMLODIPINE [Concomitant]
     Dosage: 5MG AM
     Route: 048
  6. RAMIPRIL [Concomitant]
     Dosage: 10MG AM
     Route: 048
  7. VALPROIC ACID [Concomitant]
     Dosage: 200 MG, QID
     Route: 048
  8. AMOXICILLIN AND CLAVULANATE POTASSIUM [Concomitant]
     Indication: LOWER RESPIRATORY TRACT INFECTION
     Dosage: 625 MG, BID
     Dates: start: 20040719

REACTIONS (6)
  - BLOOD UREA INCREASED [None]
  - GASTRIC ULCER [None]
  - GASTROINTESTINAL HAEMORRHAGE [None]
  - HAEMOGLOBIN DECREASED [None]
  - MEAN CELL VOLUME INCREASED [None]
  - RED BLOOD CELL COUNT DECREASED [None]
